FAERS Safety Report 7676417-9 (Version None)
Quarter: 2011Q3

REPORT INFORMATION
  Report Type: 
  Country: None (occurrence: None)
  Receive Date: 20110811
  Receipt Date: 20110808
  Transmission Date: 20111222
  Serious: Yes (Other)
  Sender: FDA-Public Use
  Company Number: US-AMGEN-USASP2011009239

PATIENT
  Age: 83 Year
  Sex: Female
  Weight: 79.4 kg

DRUGS (9)
  1. CARDIZEM [Concomitant]
  2. LISINOPRIL [Concomitant]
  3. COSOPT [Concomitant]
  4. PROCARDIA [Concomitant]
  5. NPLATE [Suspect]
     Indication: IDIOPATHIC THROMBOCYTOPENIC PURPURA
     Dosage: 10 A?G/KG, QWK
     Route: 058
     Dates: start: 20101028
  6. LIPITOR [Concomitant]
  7. PILOCARPINE [Concomitant]
  8. CORTICOSTEROIDS [Concomitant]
  9. TRAZODONE HCL [Concomitant]

REACTIONS (5)
  - EPISTAXIS [None]
  - PLATELET COUNT DECREASED [None]
  - MYELODYSPLASTIC SYNDROME [None]
  - HAEMORRHAGE [None]
  - DRUG INEFFECTIVE [None]
